FAERS Safety Report 7060147-0 (Version None)
Quarter: 2010Q4

REPORT INFORMATION
  Report Type: 
  Country: None (occurrence: None)
  Receive Date: 20101025
  Receipt Date: 20101019
  Transmission Date: 20110411
  Serious: Yes (Hospitalization)
  Sender: FDA-Public Use
  Company Number: US-GILEAD-2010-0032751

PATIENT
  Sex: Male
  Weight: 68.1 kg

DRUGS (17)
  1. LETAIRIS [Suspect]
     Indication: PULMONARY ARTERIAL HYPERTENSION
     Route: 048
     Dates: start: 20100210
  2. COUMADIN [Concomitant]
  3. ALDACTONE [Concomitant]
  4. LASIX [Concomitant]
  5. PRINIVIL [Concomitant]
  6. PROAIR HFA [Concomitant]
  7. ALBUTEROL [Concomitant]
  8. DIFLUCAN [Concomitant]
  9. TRAMADOL [Concomitant]
  10. PREVACID [Concomitant]
  11. REYATAZ [Concomitant]
  12. SYNTHROID [Concomitant]
  13. K-DUR [Concomitant]
  14. EPZICOM [Concomitant]
  15. CLOTRIMAZOLE [Concomitant]
  16. BACTRIM DS [Concomitant]
  17. CELEXA [Concomitant]

REACTIONS (3)
  - ASTHMA [None]
  - DEHYDRATION [None]
  - RESPIRATORY DISORDER [None]
